FAERS Safety Report 24454462 (Version 2)
Quarter: 2024Q4

REPORT INFORMATION
  Report Type: Spontaneous
  Country: CA (occurrence: CA)
  Receive Date: 20241017
  Receipt Date: 20241018
  Transmission Date: 20250115
  Serious: No
  Sender: ROCHE
  Company Number: CA-ROCHE-3395647

PATIENT
  Age: 80 Year
  Sex: Female

DRUGS (3)
  1. RITUXIMAB [Suspect]
     Active Substance: RITUXIMAB
     Indication: Immune thrombocytopenia
     Route: 065
  2. ELTROMBOPAG OLAMINE [Suspect]
     Active Substance: ELTROMBOPAG OLAMINE
     Indication: Immune thrombocytopenia
     Route: 048
  3. STELARA [Concomitant]
     Active Substance: USTEKINUMAB
     Indication: Product used for unknown indication
     Route: 058

REACTIONS (7)
  - Off label use [Unknown]
  - Therapy non-responder [Unknown]
  - Abdominal discomfort [Unknown]
  - Platelet count decreased [Unknown]
  - Psoriasis [Unknown]
  - Dyspepsia [Unknown]
  - Insomnia [Unknown]
